FAERS Safety Report 24608899 (Version 1)
Quarter: 2024Q4

REPORT INFORMATION
  Report Type: Spontaneous
  Country: KR (occurrence: KR)
  Receive Date: 20241112
  Receipt Date: 20241112
  Transmission Date: 20250115
  Serious: Yes (Hospitalization)
  Sender: KARYOPHARM THERAPEUTICS
  Company Number: KR-ANTENGENE-20241002836

PATIENT

DRUGS (2)
  1. XPOVIO [Suspect]
     Active Substance: SELINEXOR
     Indication: Plasma cell myeloma
     Dosage: 40 MG
     Route: 048
     Dates: start: 202411
  2. XPOVIO [Suspect]
     Active Substance: SELINEXOR
     Dosage: 60 MG
     Route: 048
     Dates: start: 202411

REACTIONS (3)
  - Headache [Unknown]
  - Cognitive disorder [Unknown]
  - Delirium [Unknown]

NARRATIVE: CASE EVENT DATE: 20241104
